FAERS Safety Report 22255020 (Version 1)
Quarter: 2023Q2

REPORT INFORMATION
  Report Type: Spontaneous
  Country: US (occurrence: None)
  Receive Date: 20230424
  Receipt Date: 20230424
  Transmission Date: 20230721
  Serious: Yes (Hospitalization)
  Sender: FDA-Public Use
  Company Number: None

PATIENT
  Age: 61 Year
  Sex: Female

DRUGS (1)
  1. SCEMBLIX [Suspect]
     Active Substance: ASCIMINIB HYDROCHLORIDE
     Dosage: FREQUENCY : DAILY;?
     Route: 048

REACTIONS (4)
  - Visual impairment [None]
  - Headache [None]
  - Toothache [None]
  - Migraine [None]

NARRATIVE: CASE EVENT DATE: 20230420
